FAERS Safety Report 6217369-8 (Version None)
Quarter: 2009Q2

REPORT INFORMATION
  Report Type: 
  Country: None (occurrence: None)
  Receive Date: 20090608
  Receipt Date: 20080815
  Transmission Date: 20091009
  Serious: No
  Sender: FDA-Public Use
  Company Number: A0743083A

PATIENT
  Age: 36 Year
  Sex: Female

DRUGS (3)
  1. WELLBUTRIN XL [Suspect]
     Indication: DEPRESSION
     Dosage: 300MG PER DAY
     Route: 048
     Dates: start: 20080718
  2. AZULFIDINE EN-TABS [Concomitant]
  3. LODINE [Concomitant]

REACTIONS (2)
  - MUSCLE RIGIDITY [None]
  - MYALGIA [None]
